FAERS Safety Report 14091722 (Version 1)
Quarter: 2017Q4

REPORT INFORMATION
  Report Type: Spontaneous
  Country: US (occurrence: US)
  Receive Date: 20171013
  Receipt Date: 20171013
  Transmission Date: 20180321
  Serious: Yes (Life-Threatening, Hospitalization)
  Sender: FDA-Public Use
  Company Number: None

PATIENT
  Age: 75 Year
  Sex: Male
  Weight: 84.8 kg

DRUGS (4)
  1. HYDROXYCHLOROQUINE [Suspect]
     Active Substance: HYDROXYCHLOROQUINE
     Indication: RHEUMATOID ARTHRITIS
     Route: 048
     Dates: start: 20170816, end: 20170908
  2. METHOTREXATE. [Concomitant]
     Active Substance: METHOTREXATE
  3. METOPROLOL. [Concomitant]
     Active Substance: METOPROLOL
  4. FOLIC ACID. [Concomitant]
     Active Substance: FOLIC ACID

REACTIONS (7)
  - Acute left ventricular failure [None]
  - Left ventricular dysfunction [None]
  - Cardiomyopathy [None]
  - Myocarditis [None]
  - Ventricular hypokinesia [None]
  - Ejection fraction [None]
  - Dilatation atrial [None]

NARRATIVE: CASE EVENT DATE: 20170929
